FAERS Safety Report 23702579 (Version 1)
Quarter: 2024Q2

REPORT INFORMATION
  Report Type: Spontaneous
  Country: US (occurrence: None)
  Receive Date: 20240403
  Receipt Date: 20240403
  Transmission Date: 20240716
  Serious: Yes (Hospitalization)
  Sender: FDA-Public Use
  Company Number: None

PATIENT
  Age: 65 Year
  Sex: Male
  Weight: 101 kg

DRUGS (3)
  1. CALQUENCE [Suspect]
     Active Substance: ACALABRUTINIB
     Indication: Chronic lymphocytic leukaemia
     Dosage: FREQUENCY : TWICE A DAY;?
     Route: 048
     Dates: end: 20240331
  2. ASPIRIN [Concomitant]
     Active Substance: ASPIRIN
  3. ELIQUIS [Concomitant]
     Active Substance: APIXABAN

REACTIONS (5)
  - Shock haemorrhagic [None]
  - Contusion [None]
  - Anaemia [None]
  - Haematoma [None]
  - Fall [None]

NARRATIVE: CASE EVENT DATE: 20240329
